FAERS Safety Report 20463089 (Version 2)
Quarter: 2022Q1

REPORT INFORMATION
  Report Type: Spontaneous
  Country: HU (occurrence: HU)
  Receive Date: 20220211
  Receipt Date: 20220223
  Transmission Date: 20220424
  Serious: Yes (Hospitalization)
  Sender: FDA-Public Use
  Company Number: HU-Gedeon Richter Plc.-2021_GR_002946

PATIENT
  Sex: Female
  Weight: 69 kg

DRUGS (2)
  1. CARIPRAZINE HYDROCHLORIDE [Suspect]
     Active Substance: CARIPRAZINE HYDROCHLORIDE
     Indication: Schizophrenia
     Dosage: 4.5 MG, QD
     Route: 048
     Dates: start: 20190923
  2. LAMOLEP [Concomitant]
     Indication: Bipolar disorder
     Dosage: 200 MG, QD
     Route: 048
     Dates: start: 20180830

REACTIONS (3)
  - Blood pressure increased [Unknown]
  - Mood altered [Unknown]
  - Pregnancy [Unknown]
